FAERS Safety Report 4302398-1 (Version None)
Quarter: 2004Q1

REPORT INFORMATION
  Report Type: 
  Country: None (occurrence: None)
  Receive Date: 20040223
  Receipt Date: 20040223
  Transmission Date: 20041129
  Serious: Yes (Hospitalization)
  Sender: FDA-Public Use
  Company Number: None

PATIENT
  Sex: Male
  Weight: 92.7 kg

DRUGS (5)
  1. IRINOTECAN [Suspect]
     Indication: SMALL CELL LUNG CANCER STAGE UNSPECIFIED
     Dosage: 50MG/M2 IV D1, D8
     Route: 042
     Dates: start: 20040120, end: 20040127
  2. PACLITAXEL [Suspect]
     Indication: SMALL CELL LUNG CANCER STAGE UNSPECIFIED
     Dosage: 75MG/M2 IV D1, D8
     Route: 042
     Dates: start: 20040120, end: 20040127
  3. REMERON [Concomitant]
  4. ZOFRAN [Concomitant]
  5. PEPCID [Concomitant]

REACTIONS (3)
  - BRONCHITIS [None]
  - DYSPNOEA [None]
  - OXYGEN SATURATION DECREASED [None]
